FAERS Safety Report 9112522 (Version 1)
Quarter: 2013Q1

REPORT INFORMATION
  Report Type: Spontaneous
  Country: BR (occurrence: BR)
  Receive Date: 20130211
  Receipt Date: 20130211
  Transmission Date: 20140127
  Serious: Yes (Hospitalization, Other)
  Sender: FDA-Public Use
  Company Number: PHHY2012BR082801

PATIENT
  Age: 68 Year
  Sex: Female

DRUGS (9)
  1. FORASEQ [Suspect]
     Indication: BRONCHITIS
     Dosage: UNK UKN, UNK
  2. FORASEQ [Suspect]
     Indication: DYSPNOEA
     Dosage: UNK UKN, UNK
  3. FORASEQ [Suspect]
     Dosage: UNK
     Dates: start: 201211
  4. AEROLIN [Concomitant]
     Indication: DYSPNOEA
     Dosage: UNK UKN, PRN
  5. SERETIDE [Concomitant]
     Indication: BRONCHITIS
     Dosage: 500 MG, UNK
  6. SERETIDE [Concomitant]
     Indication: LUNG DISORDER
     Dosage: 250 MG, 5QD
  7. SERETIDE [Concomitant]
     Indication: DYSPNOEA
     Dosage: 3 DF, QD
  8. IPRATROPIUM BROMIDE [Concomitant]
     Dosage: 0.25 MG, QD
  9. ACETYLCYSTEINE [Concomitant]
     Indication: CHRONIC OBSTRUCTIVE PULMONARY DISEASE
     Dosage: 500 MG, TID
     Route: 048

REACTIONS (9)
  - Bronchitis [Unknown]
  - Cough [Unknown]
  - Bronchial disorder [Recovering/Resolving]
  - Dyspnoea [Unknown]
  - Lung disorder [Recovering/Resolving]
  - Fatigue [Unknown]
  - Feeling abnormal [Unknown]
  - Device malfunction [Unknown]
  - Hypersensitivity [Not Recovered/Not Resolved]
